FAERS Safety Report 13883752 (Version 1)
Quarter: 2017Q3

REPORT INFORMATION
  Report Type: Spontaneous
  Country: US (occurrence: US)
  Receive Date: 20170819
  Receipt Date: 20170819
  Transmission Date: 20171127
  Serious: No
  Sender: FDA-Public Use
  Company Number: US-009507513-1708USA007778

PATIENT
  Age: 20 Year
  Sex: Female
  Weight: 58.96 kg

DRUGS (1)
  1. NEXPLANON [Suspect]
     Active Substance: ETONOGESTREL
     Indication: CONTRACEPTION
     Dosage: 1 DF, (1 IMPLANT 3 YEAR)
     Route: 059
     Dates: start: 201703

REACTIONS (2)
  - Menorrhagia [Unknown]
  - Implant site rash [Unknown]

NARRATIVE: CASE EVENT DATE: 201708
